FAERS Safety Report 6892605-3 (Version None)
Quarter: 2010Q3

REPORT INFORMATION
  Report Type: 
  Country: None (occurrence: None)
  Receive Date: 20100731
  Receipt Date: 20080805
  Transmission Date: 20110219
  Serious: No
  Sender: FDA-Public Use
  Company Number: US-PFIZER INC-2006098186

PATIENT
  Sex: Male
  Weight: 63.5 kg

DRUGS (3)
  1. NEURONTIN [Suspect]
     Indication: NEURALGIA
     Route: 065
     Dates: start: 20060806
  2. LYRICA [Suspect]
     Indication: NEURALGIA
     Dates: start: 20060101
  3. LORAZEPAM [Concomitant]
     Indication: ANXIETY
     Route: 065

REACTIONS (8)
  - DIZZINESS [None]
  - DRUG INEFFECTIVE [None]
  - DRY MOUTH [None]
  - DYSGEUSIA [None]
  - FEELING ABNORMAL [None]
  - GAIT DISTURBANCE [None]
  - HEADACHE [None]
  - PAIN [None]
